FAERS Safety Report 9283792 (Version 2)
Quarter: 2013Q3

REPORT INFORMATION
  Report Type: Spontaneous
  Country: US (occurrence: None)
  Receive Date: 20130506
  Receipt Date: 20130718
  Transmission Date: 20140515
  Serious: Yes (Hospitalization)
  Sender: FDA-Public Use
  Company Number: AUR-APL-2013-03643

PATIENT
  Age: 78 Year
  Sex: Male

DRUGS (17)
  1. HYDROCHLOROTHIAZIDE (HYDROCHLOROTHIAZIDE) [Suspect]
     Indication: PRODUCT USED FOR UNKNOWN INDICATION
     Dosage: (25 MG, 1 IN 1 D)
     Route: 048
  2. SUNITINIB MALATE [Suspect]
     Indication: PRODUCT USED FOR UNKNOWN INDICATION
     Dosage: (37.5 MG, 1 IN 1 D)
     Route: 048
     Dates: start: 20121130, end: 20121210
  3. DASATINIB [Suspect]
     Indication: PRODUCT USED FOR UNKNOWN INDICATION
     Dosage: (100 MG, 1 IN 1DAY)
     Route: 048
     Dates: start: 20120920, end: 20121031
  4. ABIRATERONE ACETATE [Suspect]
     Indication: PRODUCT USED FOR UNKNOWN INDICATION
     Dosage: (1000 MG, 1 IN 1 D)
     Route: 048
     Dates: start: 20120531, end: 20121210
  5. ADVIL (MEFENAMIC ACID) [Suspect]
     Indication: PRODUCT USED FOR UNKNOWN INDICATION
  6. POTASSIUM CHLORIDE (POTASSIUM CHLORIDE) [Suspect]
     Dosage: (20 MILLIEQUIVALENTS),UNKNOWN
  7. ADVAIR DISKUS [Suspect]
     Indication: PRODUCT USED FOR UNKNOWN INDICATION
     Dosage: 100/50 MG, 2X/DAY,RESPIRATORY (INHALATION)
     Route: 055
  8. ASPIRIN (ACETYLSALICYLIC ACID) [Suspect]
     Indication: PRODUCT USED FOR UNKNOWN INDICATION
     Dosage: (325 MG, 1 IN  1 D)
     Route: 048
  9. COMBIVENT [Suspect]
     Indication: PRODUCT USED FOR UNKNOWN INDICATION
     Dosage: (14.7 GM,AS REQUIRED),RESPIRATORY (INHALATION)
     Route: 055
  10. COREG [Suspect]
     Indication: PRODUCT USED FOR UNKNOWN INDICATION
     Route: 048
  11. ACETAMINOPHEN\HYDROCODONE BITARTRATE [Suspect]
     Indication: PRODUCT USED FOR UNKNOWN INDICATION
     Dosage: 5/325 MG, 4X/DAY (EVERY 6 HOURS),ORAL
     Route: 048
  12. ZOMETA (ZOLEDRONIC ACID) [Suspect]
     Indication: PRODUCT USED FOR UNKNOWN INDICATION
     Route: 042
  13. LUPRON [Suspect]
     Indication: PRODUCT USED FOR UNKNOWN INDICATION
     Dosage: 1 IN 3 M
     Route: 030
  14. CARAFATE [Suspect]
     Indication: PRODUCT USED FOR UNKNOWN INDICATION
  15. XOPENEX [Suspect]
     Indication: PRODUCT USED FOR UNKNOWN INDICATION
     Dosage: 2 DOSAGE FORMS (2 DOSAGE FORMS, 1 IN 1 D),UNKNOWN
  16. HYDROMORPHONE (HYDROMORPHONE) [Suspect]
     Indication: PRODUCT USED FOR UNKNOWN INDICATION
  17. AUGMENTIN [Suspect]
     Dosage: (875 MG, 2 IN 1 D)
     Route: 048

REACTIONS (10)
  - Urinary tract infection staphylococcal [None]
  - Mucosal inflammation [None]
  - Neutropenia [None]
  - Pyrexia [None]
  - Fatigue [None]
  - Haemoglobin decreased [None]
  - White blood cell count decreased [None]
  - Prostatic specific antigen increased [None]
  - Metastases to spine [None]
  - Metastases to bone [None]
